FAERS Safety Report 9007400 (Version 2)
Quarter: 2013Q1

REPORT INFORMATION
  Report Type: Spontaneous
  Country: US (occurrence: US)
  Receive Date: 20130110
  Receipt Date: 20130115
  Transmission Date: 20140127
  Serious: No
  Sender: FDA-Public Use
  Company Number: US-PFIZER INC-2013011144

PATIENT
  Age: 68 Year
  Sex: Male
  Weight: 90.7 kg

DRUGS (1)
  1. VIAGRA [Suspect]
     Indication: ERECTILE DYSFUNCTION
     Dosage: 100 MG, AS NEEDED
     Route: 048
     Dates: start: 20110704

REACTIONS (6)
  - Flushing [Unknown]
  - Nasal oedema [Unknown]
  - Nausea [Unknown]
  - Nasal congestion [Unknown]
  - Suspected counterfeit product [Unknown]
  - Drug ineffective [Unknown]
